FAERS Safety Report 9119688 (Version 1)
Quarter: 2013Q1

REPORT INFORMATION
  Report Type: Spontaneous
  Country: DK (occurrence: None)
  Receive Date: 20130130
  Receipt Date: 20130130
  Transmission Date: 20140127
  Serious: No
  Sender: FDA-Public Use
  Company Number: 2013MA000745

PATIENT
  Age: 48 Year
  Sex: Female

DRUGS (1)
  1. OXALIPLATIN FOR INJECTION USP 100MG SINGLE-DOSE VIALS (ATLLC) (OXALIPLATIN) [Suspect]
     Indication: COLON CANCER METASTATIC
     Dosage: 85 MG/M**2, IV
     Dates: start: 20120917, end: 20170917

REACTIONS (2)
  - Cardiac arrest [None]
  - Anaphylactic shock [None]
